FAERS Safety Report 20533719 (Version 1)
Quarter: 2022Q1

REPORT INFORMATION
  Report Type: Report from Study
  Country: US (occurrence: US)
  Receive Date: 20220301
  Receipt Date: 20220301
  Transmission Date: 20220423
  Serious: Yes (Other)
  Sender: FDA-Public Use
  Company Number: US-INCYTE CORPORATION-2022IN001846

PATIENT

DRUGS (3)
  1. JAKAFI [Suspect]
     Active Substance: RUXOLITINIB
     Indication: Myelofibrosis
     Dosage: 20 MILLIGRAM, BID (TWO 20MG TABLETS DAILY)
     Route: 048
     Dates: start: 20131219, end: 201403
  2. JAKAFI [Suspect]
     Active Substance: RUXOLITINIB
     Dosage: TWO 10MG TABLETS
     Route: 048
  3. JAKAFI [Suspect]
     Active Substance: RUXOLITINIB
     Dosage: 20 MILLIGRAM, BID (TWO 20MG TABLETS DAILY)
     Route: 048
     Dates: start: 201404

REACTIONS (7)
  - Type 2 diabetes mellitus [Unknown]
  - Ill-defined disorder [Unknown]
  - Hypercoagulation [Recovered/Resolved]
  - Fatigue [Unknown]
  - Therapeutic response unexpected [Unknown]
  - Anaemia [Unknown]
  - Weight increased [Not Recovered/Not Resolved]
